FAERS Safety Report 7706634-0 (Version None)
Quarter: 2011Q3

REPORT INFORMATION
  Report Type: 
  Country: None (occurrence: None)
  Receive Date: 20110824
  Receipt Date: 20110815
  Transmission Date: 20111222
  Serious: Yes (Hospitalization, Other)
  Sender: FDA-Public Use
  Company Number: JP-JNJFOC-20091003552

PATIENT
  Sex: Female
  Weight: 59 kg

DRUGS (33)
  1. DOXORUBICIN HCL [Suspect]
     Route: 042
     Dates: start: 20091112, end: 20091112
  2. DOXORUBICIN HCL [Suspect]
     Route: 042
     Dates: start: 20100406, end: 20100406
  3. AZUNOL [Concomitant]
     Indication: PROPHYLAXIS
     Route: 049
     Dates: start: 20090713
  4. ZOFRAN [Concomitant]
     Route: 048
     Dates: start: 20100910, end: 20100912
  5. MUCOSTA [Concomitant]
     Indication: PROPHYLAXIS
     Route: 048
     Dates: start: 20100302, end: 20101015
  6. CHINESE MEDICATION [Concomitant]
     Indication: FLATULENCE
     Route: 048
     Dates: start: 20090824
  7. PRIMPERAN TAB [Concomitant]
     Indication: ABDOMINAL PAIN
     Route: 042
     Dates: start: 20090818, end: 20090818
  8. DOXORUBICIN HCL [Suspect]
     Route: 042
     Dates: start: 20091215, end: 20091215
  9. DOXORUBICIN HCL [Suspect]
     Route: 042
     Dates: start: 20100506, end: 20100506
  10. DOXORUBICIN HCL [Suspect]
     Route: 042
     Dates: start: 20090713, end: 20090713
  11. DOXORUBICIN HCL [Suspect]
     Route: 042
     Dates: start: 20100910, end: 20100910
  12. LIPITOR [Concomitant]
     Indication: HYPERLIPIDAEMIA
     Route: 048
     Dates: end: 20101015
  13. SCOPOLAMINE [Concomitant]
     Indication: ABDOMINAL PAIN
     Route: 042
     Dates: start: 20090818, end: 20090818
  14. FLURBIPROFEN [Concomitant]
     Indication: ABDOMINAL PAIN
     Route: 042
     Dates: start: 20090819, end: 20090819
  15. DOXORUBICIN HCL [Suspect]
     Route: 042
     Dates: start: 20100122, end: 20100122
  16. STADOL [Concomitant]
     Indication: ABDOMINAL PAIN
     Route: 042
     Dates: start: 20090818, end: 20090819
  17. PYDOXAL [Concomitant]
     Indication: PROPHYLAXIS
     Route: 048
     Dates: start: 20090713, end: 20101015
  18. ZOFRAN [Concomitant]
     Indication: PROPHYLAXIS
     Route: 048
     Dates: start: 20090713, end: 20090715
  19. MAGNESIUM OXIDE [Concomitant]
     Indication: CONSTIPATION
     Route: 048
     Dates: end: 20100916
  20. PROCTOSEDYL [Concomitant]
     Indication: PRODUCT USED FOR UNKNOWN INDICATION
     Route: 054
     Dates: start: 20100909, end: 20100911
  21. DOXORUBICIN HCL [Suspect]
     Route: 042
     Dates: start: 20100302, end: 20100302
  22. DOXORUBICIN HCL [Suspect]
     Route: 042
     Dates: start: 20100607, end: 20100607
  23. FILGRASTIM [Suspect]
     Route: 050
     Dates: start: 20090811, end: 20090811
  24. DECADRON [Concomitant]
     Route: 042
     Dates: start: 20090827, end: 20090827
  25. DECADRON [Concomitant]
     Indication: RASH
     Route: 048
     Dates: start: 20090812, end: 20090814
  26. DOXORUBICIN HCL [Suspect]
     Route: 042
     Dates: start: 20090827, end: 20090827
  27. DOXORUBICIN HCL [Suspect]
     Route: 042
     Dates: start: 20100714, end: 20100714
  28. FILGRASTIM [Suspect]
     Indication: NEUTROPHIL COUNT DECREASED
     Route: 050
     Dates: start: 20090717, end: 20090718
  29. SODIUM HYALURONATE [Concomitant]
     Route: 065
     Dates: start: 20090826
  30. DOXORUBICIN HCL [Suspect]
     Indication: OVARIAN CANCER RECURRENT
     Route: 042
     Dates: start: 20090925, end: 20090925
  31. DECADRON [Concomitant]
     Indication: PROPHYLAXIS
     Route: 042
     Dates: start: 20090713, end: 20090713
  32. ZOFRAN [Concomitant]
     Route: 048
     Dates: start: 20090827, end: 20090827
  33. VERAPAMIL HCL [Concomitant]
     Indication: SUPRAVENTRICULAR TACHYCARDIA
     Route: 042
     Dates: start: 20090812, end: 20090812

REACTIONS (2)
  - SUPRAVENTRICULAR TACHYCARDIA [None]
  - CONSTIPATION [None]
